FAERS Safety Report 5980248-5 (Version None)
Quarter: 2008Q4

REPORT INFORMATION
  Report Type: 
  Country: None (occurrence: None)
  Receive Date: 20081205
  Receipt Date: 20081121
  Transmission Date: 20090506
  Serious: Yes (Other)
  Sender: FDA-Public Use
  Company Number: PHHY2008ES29308

PATIENT
  Age: 29 Year
  Sex: Male

DRUGS (1)
  1. ELIDEL [Suspect]
     Indication: DERMATITIS ATOPIC
     Dosage: 2-3 APPLICATIONS
     Dates: start: 20081103

REACTIONS (2)
  - HERPES ZOSTER [None]
  - RENAL PAIN [None]
